FAERS Safety Report 9989508 (Version 2)
Quarter: 2014Q1

REPORT INFORMATION
  Report Type: Report from Study
  Country: US (occurrence: US)
  Receive Date: 20140310
  Receipt Date: 20140310
  Transmission Date: 20141002
  Serious: Yes (Other)
  Sender: FDA-Public Use
  Company Number: US-ABBVIE-13P-163-1115348-00

PATIENT
  Age: 32 Year
  Sex: Female
  Weight: 68.1 kg

DRUGS (2)
  1. HUMIRA [Suspect]
     Indication: CROHN^S DISEASE
     Route: 058
     Dates: start: 20130404
  2. MESALAMINE [Concomitant]

REACTIONS (1)
  - Cholecystectomy [Unknown]
